FAERS Safety Report 12396305 (Version 2)
Quarter: 2016Q2

REPORT INFORMATION
  Report Type: Spontaneous
  Country: US (occurrence: US)
  Receive Date: 20160524
  Receipt Date: 20160621
  Transmission Date: 20160815
  Serious: Yes (Hospitalization)
  Sender: FDA-Public Use
  Company Number: US-ACCORD-040596

PATIENT
  Age: 59 Year
  Sex: Male

DRUGS (13)
  1. PREDNISONE. [Concomitant]
     Active Substance: PREDNISONE
  2. PANTOPRAZOLE [Concomitant]
     Active Substance: PANTOPRAZOLE SODIUM
  3. CALCIUM CARBONATE/COLECALCIFEROL [Concomitant]
     Dosage: CALCIUM CARBONATE- VITAMIN D3
  4. SERTRALINE [Suspect]
     Active Substance: SERTRALINE HYDROCHLORIDE
     Indication: DEPRESSION
  5. FUROSEMIDE. [Concomitant]
     Active Substance: FUROSEMIDE
  6. MELATONIN [Concomitant]
     Active Substance: MELATONIN
  7. TACROLIMUS. [Suspect]
     Active Substance: TACROLIMUS
     Indication: PRODUCT USED FOR UNKNOWN INDICATION
  8. RISPERIDONE. [Suspect]
     Active Substance: RISPERIDONE
     Indication: DELIRIUM
     Dosage: 0.5MG AT BEDTIME, LATER INCREASED TO 1MG
  9. ACETYLSALICYLIC ACID [Concomitant]
     Active Substance: ASPIRIN
  10. MYCOPHENOLIC ACID. [Concomitant]
     Active Substance: MYCOPHENOLIC ACID
  11. MAGNESIUM OXIDE. [Concomitant]
     Active Substance: MAGNESIUM OXIDE
  12. SULFAMETHOXAZOLE/TRIMETHOPRIM [Concomitant]
  13. VALACICLOVIR [Concomitant]
     Active Substance: VALACYCLOVIR HYDROCHLORIDE

REACTIONS (11)
  - Peritonitis bacterial [Unknown]
  - Gait disturbance [Unknown]
  - Pleural effusion [Unknown]
  - Catatonia [Recovered/Resolved]
  - Bradykinesia [Unknown]
  - Posterior reversible encephalopathy syndrome [Unknown]
  - Ataxia [Unknown]
  - Hallucination, visual [Recovered/Resolved]
  - Insomnia [Unknown]
  - Nystagmus [Unknown]
  - Abnormal behaviour [Unknown]
